FAERS Safety Report 4642691-6 (Version None)
Quarter: 2005Q2

REPORT INFORMATION
  Report Type: 
  Country: None (occurrence: None)
  Receive Date: 20050422
  Receipt Date: 20050407
  Transmission Date: 20051028
  Serious: Yes (Other)
  Sender: FDA-Public Use
  Company Number: US-JNJFOC-20050404847

PATIENT
  Sex: Male
  Weight: 77.11 kg

DRUGS (6)
  1. MOTRIN [Suspect]
     Indication: OSTEOARTHRITIS
     Route: 049
  2. FELDENE [Suspect]
     Indication: OSTEOARTHRITIS
  3. VIOXX [Suspect]
     Indication: DRUG USE FOR UNKNOWN INDICATION
  4. OXYCODONE [Concomitant]
     Route: 049
  5. CALAN [Concomitant]
     Route: 049
  6. VERAPAMIL [Concomitant]
     Route: 049

REACTIONS (7)
  - BODY HEIGHT DECREASED [None]
  - COLON CANCER [None]
  - DIVERTICULUM [None]
  - GASTRIC HAEMORRHAGE [None]
  - HAEMATEMESIS [None]
  - HAEMATOCHEZIA [None]
  - THROMBOSIS [None]
